FAERS Safety Report 6581537-6 (Version None)
Quarter: 2010Q1

REPORT INFORMATION
  Report Type: 
  Country: None (occurrence: None)
  Receive Date: 20100215
  Receipt Date: 20100208
  Transmission Date: 20100710
  Serious: Yes (Life-Threatening, Hospitalization, Other)
  Sender: FDA-Public Use
  Company Number: US-MERCK-1001USA03689

PATIENT
  Age: 69 Year
  Sex: Male
  Weight: 87 kg

DRUGS (5)
  1. JANUVIA [Suspect]
     Indication: TYPE 2 DIABETES MELLITUS
     Route: 048
     Dates: start: 20090301, end: 20100116
  2. METFORMIN [Concomitant]
     Route: 065
  3. ATACAND [Concomitant]
     Route: 065
  4. ECOTRIN [Concomitant]
     Route: 065
  5. DIURETIC (UNSPECIFIED) [Concomitant]
     Route: 065

REACTIONS (7)
  - ABDOMINAL PAIN UPPER [None]
  - ANGIOEDEMA [None]
  - ANXIETY [None]
  - DIARRHOEA [None]
  - EPIGLOTTITIS [None]
  - HAEMATURIA [None]
  - RHINORRHOEA [None]
